FAERS Safety Report 12636978 (Version 2)
Quarter: 2016Q3

REPORT INFORMATION
  Report Type: Spontaneous
  Country: US (occurrence: US)
  Receive Date: 20160809
  Receipt Date: 20160912
  Transmission Date: 20161109
  Serious: No
  Sender: FDA-Public Use
  Company Number: US-INCYTE CORPORATION-2016IN003151

PATIENT
  Sex: Female

DRUGS (2)
  1. JAKAFI [Suspect]
     Active Substance: RUXOLITINIB
     Indication: POLYCYTHAEMIA VERA
     Dosage: 5 MG, BID
     Route: 048
     Dates: start: 20160422
  2. JAKAFI [Suspect]
     Active Substance: RUXOLITINIB
     Dosage: TWO TABLETS (10 MG) EVERY MORNING AND ONE TABLET (5 MG) EVERY EVENING
     Route: 048
     Dates: start: 20160422

REACTIONS (2)
  - Headache [Unknown]
  - Platelet count increased [Unknown]
